FAERS Safety Report 13335383 (Version 1)
Quarter: 2017Q1

REPORT INFORMATION
  Report Type: Spontaneous
  Country: US (occurrence: US)
  Receive Date: 20170314
  Receipt Date: 20170314
  Transmission Date: 20170428
  Serious: No
  Sender: FDA-Public Use
  Company Number: US-GALDERMA-US16006583

PATIENT
  Age: 62 Year
  Sex: Female

DRUGS (7)
  1. TRI-LUMA [Suspect]
     Active Substance: FLUOCINOLONE ACETONIDE\HYDROQUINONE\TRETINOIN
     Indication: LENTIGO
  2. TRI-LUMA [Suspect]
     Active Substance: FLUOCINOLONE ACETONIDE\HYDROQUINONE\TRETINOIN
     Indication: PIGMENTATION DISORDER
  3. NEUTROGENA WIPES [Concomitant]
     Indication: THERAPEUTIC SKIN CARE TOPICAL
     Route: 061
  4. CERAVE CLEANSER [Concomitant]
     Indication: THERAPEUTIC SKIN CARE TOPICAL
     Route: 061
  5. TINTED MOISTURIZING CREAM MIXED WITH OIL OF OLAY [Concomitant]
     Indication: THERAPEUTIC SKIN CARE TOPICAL
     Route: 061
  6. UNSPECIFIED MAKE UP [Concomitant]
     Indication: THERAPEUTIC SKIN CARE TOPICAL
     Route: 061
  7. TRI-LUMA [Suspect]
     Active Substance: FLUOCINOLONE ACETONIDE\HYDROQUINONE\TRETINOIN
     Indication: LENTIGO
     Route: 061
     Dates: start: 20160919, end: 20160922

REACTIONS (6)
  - Erythema [Recovered/Resolved]
  - Dermatitis [Recovered/Resolved]
  - Intentional product misuse [Recovered/Resolved]
  - Skin burning sensation [Recovered/Resolved]
  - Skin exfoliation [Recovered/Resolved]
  - Pain of skin [Recovered/Resolved]

NARRATIVE: CASE EVENT DATE: 20160919
